FAERS Safety Report 8921314 (Version 1)
Quarter: 2012Q4

REPORT INFORMATION
  Report Type: 
  Country: US (occurrence: US)
  Receive Date: 20121122
  Receipt Date: 20121122
  Transmission Date: 20130627
  Serious: No
  Sender: FDA-Public Use
  Company Number: US-B.I. PHARMACEUTICALS,INC./RIDGEFIELD-2012-BI-00944BP

PATIENT
  Sex: Male
  Weight: 28 kg

DRUGS (8)
  1. SPIRIVA [Suspect]
     Indication: CHRONIC OBSTRUCTIVE PULMONARY DISEASE
     Dosage: 18 mcg
     Route: 055
     Dates: start: 2011
  2. CARDIZEM [Concomitant]
     Indication: HYPERTENSION
     Dosage: Strength: 180 mg; Daily Dose: 180 mg
     Route: 048
  3. COZAAR [Concomitant]
     Dosage: Strength: 50 mg; Daily Dose: 50 mg
     Route: 048
  4. PLAVIX [Concomitant]
     Dosage: Strength: 75 mg; Daily Dose: 75 mg
     Route: 048
  5. PRILOSEC [Concomitant]
     Route: 048
  6. VENTOLIN HFA [Concomitant]
     Route: 055
  7. FLUCONASE [Concomitant]
     Route: 045
  8. ALBUTEROL [Concomitant]
     Route: 055

REACTIONS (2)
  - Increased upper airway secretion [Not Recovered/Not Resolved]
  - Cataract [Not Recovered/Not Resolved]
